FAERS Safety Report 4917033-9 (Version None)
Quarter: 2006Q1

REPORT INFORMATION
  Report Type: 
  Country: None (occurrence: None)
  Receive Date: 20060214
  Receipt Date: 20060202
  Transmission Date: 20060701
  Serious: Yes (Hospitalization)
  Sender: FDA-Public Use
  Company Number: FR 2006 0020

PATIENT
  Sex: Female

DRUGS (1)
  1. DOTAREM  -MEGLUMINE GADOTERATE (DOTAREM) [Suspect]
     Indication: NUCLEAR MAGNETIC RESONANCE IMAGING
     Dosage: 15 ML PER DAY INTRA-VEINOUS
     Route: 042
     Dates: start: 20050612, end: 20050612

REACTIONS (5)
  - LOSS OF CONSCIOUSNESS [None]
  - MALAISE [None]
  - NAUSEA [None]
  - RASH [None]
  - VOMITING [None]
